FAERS Safety Report 18292888 (Version 2)
Quarter: 2020Q3

REPORT INFORMATION
  Report Type: Spontaneous
  Country: US (occurrence: US)
  Receive Date: 20200922
  Receipt Date: 20200929
  Transmission Date: 20201103
  Serious: No
  Sender: FDA-Public Use
  Company Number: US-TEVA-2020-US-1831331

PATIENT
  Sex: Female

DRUGS (1)
  1. ATORVASTATIN CALCIUM TEVA [Suspect]
     Active Substance: ATORVASTATIN CALCIUM
     Indication: BLOOD CHOLESTEROL INCREASED
     Route: 065

REACTIONS (3)
  - Drug ineffective [Unknown]
  - Product residue present [Unknown]
  - Product solubility abnormal [Unknown]
